FAERS Safety Report 15267025 (Version 1)
Quarter: 2018Q3

REPORT INFORMATION
  Report Type: Spontaneous
  Country: US (occurrence: US)
  Receive Date: 20180724
  Receipt Date: 20180724
  Transmission Date: 20181010
  Serious: Yes (Hospitalization)
  Sender: FDA-Public Use
  Company Number: None

PATIENT
  Sex: Male
  Weight: 46.72 kg

DRUGS (7)
  1. VINCRISTINE [Suspect]
     Active Substance: VINCRISTINE
     Dates: end: 20180521
  2. DAUNORUBICIN [Suspect]
     Active Substance: DAUNORUBICIN
     Dates: end: 20180528
  3. MERCAPTOPURINE. [Suspect]
     Active Substance: MERCAPTOPURINE
     Dates: end: 20180625
  4. CYCLOPHOSPHAMIDE. [Suspect]
     Active Substance: CYCLOPHOSPHAMIDE
     Dates: end: 20180618
  5. CYTARABINE. [Suspect]
     Active Substance: CYTARABINE
     Dates: end: 20180628
  6. METHOTREXATE. [Suspect]
     Active Substance: METHOTREXATE
     Dates: end: 20180709
  7. ONCASPAR [Suspect]
     Active Substance: PEGASPARGASE
     Dates: end: 20180524

REACTIONS (7)
  - White blood cell count decreased [None]
  - Computerised tomogram thorax abnormal [None]
  - Febrile neutropenia [None]
  - Respirovirus test positive [None]
  - Body temperature increased [None]
  - Lower respiratory tract inflammation [None]
  - Lung infection [None]

NARRATIVE: CASE EVENT DATE: 20180712
